FAERS Safety Report 9474446 (Version 1)
Quarter: 2013Q3

REPORT INFORMATION
  Report Type: Report from Study
  Country: US (occurrence: US)
  Receive Date: 20130823
  Receipt Date: 20130823
  Transmission Date: 20140515
  Serious: Yes (Life-Threatening, Hospitalization, Other)
  Sender: FDA-Public Use
  Company Number: US-009507513-1308USA009212

PATIENT
  Age: 11 Year
  Sex: Male
  Weight: 34 kg

DRUGS (4)
  1. ELSPAR [Suspect]
     Indication: B PRECURSOR TYPE ACUTE LEUKAEMIA
     Dosage: 6000 DAILY
     Route: 030
     Dates: start: 20130703, end: 20130713
  2. VELCADE [Suspect]
     Indication: B PRECURSOR TYPE ACUTE LEUKAEMIA
     Dosage: 1.3 MG/M2, UNK
     Route: 042
     Dates: start: 20130402, end: 20130521
  3. CYTARABINE [Suspect]
     Indication: B PRECURSOR TYPE ACUTE LEUKAEMIA
     Dosage: 3000 MG/M2 DAILY
     Route: 042
     Dates: start: 20130703, end: 20130711
  4. CYTARABINE [Suspect]
     Dosage: UNK
     Route: 037
     Dates: start: 20130402

REACTIONS (5)
  - Respiratory failure [Recovering/Resolving]
  - Sepsis [Recovering/Resolving]
  - Hypertension [Recovering/Resolving]
  - Blood creatinine increased [Recovering/Resolving]
  - Posterior reversible encephalopathy syndrome [Recovering/Resolving]
